FAERS Safety Report 6119776 (Version 26)
Quarter: 2014Q1

REPORT INFORMATION
  Report Type: Spontaneous
  Country: US (occurrence: US)
  Receive Date: 20060831
  Receipt Date: 20140206
  Transmission Date: 20141002
  Serious: Yes (Hospitalization, Other)
  Sender: FDA-Public Use
  Company Number: PHEH2006US10887

PATIENT
  Age: 43 Year
  Sex: Female
  Weight: 77.1 kg

DRUGS (44)
  1. ZOMETA [Suspect]
     Indication: METASTASES TO BONE
     Dosage: 4 MG, QMO
     Route: 041
     Dates: start: 20030425, end: 200609
  2. ZOMETA [Suspect]
     Route: 042
     Dates: start: 20040628, end: 200612
  3. AREDIA [Suspect]
     Route: 042
  4. ZOLADEX [Concomitant]
     Indication: METASTASES TO BONE
     Route: 058
     Dates: start: 20030425
  5. XELODA [Concomitant]
     Indication: BREAST CANCER
     Dates: start: 20030721
  6. HERCEPTIN [Concomitant]
     Indication: BREAST CANCER
     Dosage: 55 MG, UNK
     Route: 042
     Dates: start: 20031016
  7. FEMARA [Concomitant]
     Indication: BREAST CANCER
     Dosage: 2.5 MG, QD
     Route: 048
     Dates: start: 20031121
  8. PROCRIT [Concomitant]
     Indication: ANAEMIA
     Dosage: 40000 U, UNK
     Route: 058
     Dates: start: 20040212
  9. NAVELBINE [Concomitant]
     Indication: BREAST CANCER
     Route: 042
     Dates: start: 200310
  10. TAMOXIFEN [Concomitant]
  11. PERCOCET [Concomitant]
  12. IRON SUPPLEMENTS [Concomitant]
  13. KEFLEX                                  /USA/ [Concomitant]
  14. IBUPROFEN [Concomitant]
  15. ASPIRIN ^BAYER^ [Concomitant]
  16. TRASTUZUMAB [Concomitant]
  17. ACETAMINOPHEN [Concomitant]
  18. DIPHENHYDRAMINE [Concomitant]
  19. MEPERIDINE [Concomitant]
  20. LOVENOX [Concomitant]
  21. OXYCONTIN [Concomitant]
  22. NEUPOGEN [Concomitant]
  23. PEPCID [Concomitant]
  24. COLACE [Concomitant]
  25. BEXTRA [Concomitant]
  26. AMBIEN [Concomitant]
     Dosage: 5 MG, UNK
     Dates: start: 19980507
  27. ROXICET [Concomitant]
     Dates: start: 19980507
  28. CEPHALEXIN [Concomitant]
     Dosage: 500 MG, UNK
     Dates: start: 19980527
  29. DIAZEPAM [Concomitant]
     Dates: start: 19980805
  30. COMPAZINE [Concomitant]
     Dates: start: 19980806
  31. CIPRO [Concomitant]
     Dosage: 750 MG, UNK
     Dates: start: 19980819
  32. TRIMOX [Concomitant]
     Dosage: 250 MG, UNK
     Dates: start: 19990826
  33. VEETIDS [Concomitant]
     Dosage: 500 MG, UNK
  34. DICLOXACILLIN [Concomitant]
     Dosage: 500 MG, UNK
  35. ERY-TAB [Concomitant]
     Dates: start: 20000720
  36. ZYRTEC [Concomitant]
     Dosage: 10 MG, UNK
     Dates: start: 20000720
  37. TRIAMCINOLONE [Concomitant]
     Dosage: 0.1 %, UNK
     Dates: start: 20011017
  38. AMITRIPTYLINE [Concomitant]
     Dosage: 10 MG, UNK
     Dates: start: 20011211
  39. ENDOCET [Concomitant]
     Dates: start: 20020720
  40. CYCLOBENZAPRINE [Concomitant]
     Dosage: 10 MG, UNK
  41. PREDNISONE [Concomitant]
     Dosage: 10 MG, UNK
     Dates: start: 20021125
  42. PENICILLIN VK [Concomitant]
     Dosage: 500 MG, UNK
     Dates: start: 20021210
  43. OXYCODONE/APAP [Concomitant]
     Dates: start: 20030303
  44. LYRICA [Concomitant]

REACTIONS (108)
  - Neoplasm progression [Unknown]
  - Malignant neoplasm progression [Unknown]
  - Metastases to central nervous system [Unknown]
  - Metastases to spine [Unknown]
  - Metastases to bone [Unknown]
  - Metastatic neoplasm [Unknown]
  - Pulmonary mass [Unknown]
  - Splenomegaly [Unknown]
  - Hepatic cyst [Unknown]
  - Acute sinusitis [Unknown]
  - Osteonecrosis of jaw [Unknown]
  - Injury [Unknown]
  - Excessive granulation tissue [Unknown]
  - Fungal infection [Unknown]
  - Osteomyelitis acute [Unknown]
  - Pain [Unknown]
  - Anxiety [Unknown]
  - Osteitis [Unknown]
  - Pain in jaw [Unknown]
  - Bone disorder [Unknown]
  - Tooth disorder [Unknown]
  - Dental caries [Unknown]
  - Arthralgia [Unknown]
  - Spinal pain [Unknown]
  - Diverticulum intestinal [Unknown]
  - Fracture nonunion [Unknown]
  - Sinus disorder [Unknown]
  - Sinus headache [Unknown]
  - Cervix inflammation [Unknown]
  - Granuloma [Unknown]
  - Anaemia [Unknown]
  - Osteosclerosis [Unknown]
  - Osteonecrosis [Unknown]
  - Neutropenia [Unknown]
  - Spinal osteoarthritis [Unknown]
  - Osteoarthritis [Unknown]
  - Cellulitis [Unknown]
  - Wound infection staphylococcal [Unknown]
  - Headache [Recovering/Resolving]
  - Herpes zoster [Unknown]
  - Rash [Unknown]
  - Neck pain [Recovered/Resolved]
  - Muscle spasms [Recovered/Resolved]
  - Alopecia areata [Recovering/Resolving]
  - Melanocytic naevus [Unknown]
  - Hypoaesthesia [Recovering/Resolving]
  - Spinal column stenosis [Unknown]
  - Hepatic steatosis [Unknown]
  - Constipation [Unknown]
  - Actinomycotic skin infection [Unknown]
  - Lymph node calcification [Unknown]
  - Hepatic lesion [Unknown]
  - Rib fracture [Recovering/Resolving]
  - Infection [Unknown]
  - Gastrooesophageal reflux disease [Unknown]
  - Stress fracture [Unknown]
  - Localised infection [Unknown]
  - Hiatus hernia [Unknown]
  - Groin pain [Unknown]
  - Gait disturbance [Unknown]
  - Back pain [Unknown]
  - Palatal disorder [Unknown]
  - Exposed bone in jaw [Unknown]
  - Nail dystrophy [Unknown]
  - Onycholysis [Unknown]
  - Onychomycosis [Unknown]
  - Bone pain [Unknown]
  - Osteolysis [Unknown]
  - Fatigue [Unknown]
  - Bursitis [Unknown]
  - Conjunctivitis [Unknown]
  - Large intestine polyp [Unknown]
  - Colon adenoma [Unknown]
  - Breast calcifications [Unknown]
  - Dry eye [Unknown]
  - Myopia [Unknown]
  - Astigmatism [Unknown]
  - Presbyopia [Unknown]
  - Hypertension [Unknown]
  - Vision blurred [Unknown]
  - Vitreous floaters [Unknown]
  - Ingrowing nail [Unknown]
  - Paronychia [Unknown]
  - Neuralgia [Unknown]
  - Radiculitis [Unknown]
  - Facet joint syndrome [Unknown]
  - Intervertebral disc protrusion [Unknown]
  - Deformity [Unknown]
  - Breast cancer metastatic [Unknown]
  - Spinal compression fracture [Unknown]
  - Cystitis haemorrhagic [Unknown]
  - Mucosal inflammation [Unknown]
  - Thrombocytopenia [Unknown]
  - Tumour lysis syndrome [Unknown]
  - Malnutrition [Unknown]
  - Diarrhoea [Unknown]
  - Pathological fracture [Unknown]
  - Joint instability [Unknown]
  - Sleep apnoea syndrome [Unknown]
  - Type 2 diabetes mellitus [Unknown]
  - HIV infection [Unknown]
  - Osteoporosis [Unknown]
  - Convulsion [Unknown]
  - Angina pectoris [Unknown]
  - Orthopnoea [Unknown]
  - Asthma [Unknown]
  - Chronic obstructive pulmonary disease [Unknown]
  - Hyperthermia malignant [Unknown]
